FAERS Safety Report 16598126 (Version 2)
Quarter: 2019Q3

REPORT INFORMATION
  Report Type: Spontaneous
  Country: FR (occurrence: FR)
  Receive Date: 20190719
  Receipt Date: 20190722
  Transmission Date: 20191004
  Serious: Yes (Hospitalization, Other)
  Sender: FDA-Public Use
  Company Number: FR-PFIZER INC-2019304075

PATIENT
  Age: 59 Year
  Sex: Female
  Weight: 74 kg

DRUGS (8)
  1. PREDNISONE. [Concomitant]
     Active Substance: PREDNISONE
     Dosage: 7 MG, UNK
  2. MABTHERA [Suspect]
     Active Substance: RITUXIMAB
     Indication: GRANULOMATOSIS WITH POLYANGIITIS
     Dosage: 500 MG, 1X/DAY
     Route: 042
     Dates: start: 201807, end: 20190117
  3. BACTRIM [Suspect]
     Active Substance: SULFAMETHOXAZOLE\TRIMETHOPRIM
     Indication: GRANULOMATOSIS WITH POLYANGIITIS
     Dosage: 1 DF, 1X/DAY
     Route: 048
     Dates: start: 2016, end: 20190511
  4. PARACETAMOL [Concomitant]
     Active Substance: ACETAMINOPHEN
     Dosage: 1 MG, 3 X/DAY, IF NEEDED
  5. LYRICA [Suspect]
     Active Substance: PREGABALIN
     Indication: GRANULOMATOSIS WITH POLYANGIITIS
     Dosage: 50 MG, 1X/DAY
     Route: 048
     Dates: start: 201807, end: 20190511
  6. ALENDRONATE [Concomitant]
     Active Substance: ALENDRONATE SODIUM
     Dosage: 70 MG, WEEKLY
  7. EUPANTOL [Suspect]
     Active Substance: PANTOPRAZOLE SODIUM
     Indication: PROPHYLAXIS AGAINST GASTROINTESTINAL ULCER
     Dosage: 20 MG, 1X/DAY
     Route: 048
     Dates: start: 2016, end: 20190511
  8. LEVOTHYROX [Concomitant]
     Active Substance: LEVOTHYROXINE
     Dosage: 75 UG, DAILY

REACTIONS (3)
  - Off label use [Unknown]
  - Agranulocytosis [Recovered/Resolved]
  - Product use in unapproved indication [Unknown]

NARRATIVE: CASE EVENT DATE: 201807
